FAERS Safety Report 17283705 (Version 2)
Quarter: 2020Q1

REPORT INFORMATION
  Report Type: Spontaneous
  Country: US (occurrence: US)
  Receive Date: 20200117
  Receipt Date: 20200219
  Transmission Date: 20200409
  Serious: Yes (Other)
  Sender: FDA-Public Use
  Company Number: US-PFIZER INC-2020018600

PATIENT
  Age: 67 Year
  Sex: Female

DRUGS (1)
  1. LYRICA [Suspect]
     Active Substance: PREGABALIN
     Dosage: UNK

REACTIONS (10)
  - Near death experience [Unknown]
  - Influenza [Unknown]
  - Bronchitis [Unknown]
  - Hypophagia [Unknown]
  - Hypoaesthesia [Unknown]
  - Pain [Unknown]
  - Nerve injury [Unknown]
  - Malaise [Unknown]
  - Weight decreased [Unknown]
  - Upper limb fracture [Unknown]
